FAERS Safety Report 5267029-5 (Version None)
Quarter: 2007Q1

REPORT INFORMATION
  Report Type: 
  Country: None (occurrence: None)
  Receive Date: 20070313
  Receipt Date: 20070227
  Transmission Date: 20070707
  Serious: Yes (Hospitalization)
  Sender: FDA-Public Use
  Company Number: 231470K07USA

PATIENT
  Age: 68 Year
  Sex: Female

DRUGS (6)
  1. REBIF [Suspect]
     Indication: MULTIPLE SCLEROSIS
     Dosage: 44 MCG, 3 IN 1 WEEKS, SUBCUTANEOUS
     Route: 058
     Dates: start: 20031015
  2. AMANTADINE (AMANTADINE /00055901/) [Concomitant]
  3. PROVIGIL [Concomitant]
  4. ZOLOFT [Concomitant]
  5. LYRICA [Concomitant]
  6. COUMADIN [Concomitant]

REACTIONS (2)
  - NEPHROLITHIASIS [None]
  - PULMONARY HYPERTENSION [None]
